FAERS Safety Report 21148698 (Version 1)
Quarter: 2022Q3

REPORT INFORMATION
  Report Type: Spontaneous
  Country: US (occurrence: None)
  Receive Date: 20220729
  Receipt Date: 20220729
  Transmission Date: 20221027
  Serious: Yes (unspecified)
  Sender: FDA-Public Use
  Company Number: None

PATIENT
  Age: 45 Year
  Sex: Female
  Weight: 65.77 kg

DRUGS (2)
  1. COPPER-CONTAINING INTRAUTERINE DEVICE (IUD) [Suspect]
     Active Substance: COPPER
     Indication: Product used for unknown indication
  2. COSMETICS [Suspect]
     Active Substance: COSMETICS

REACTIONS (1)
  - Device breakage [None]

NARRATIVE: CASE EVENT DATE: 20220728
